FAERS Safety Report 21019634 (Version 1)
Quarter: 2022Q2

REPORT INFORMATION
  Report Type: Report from Study
  Country: US (occurrence: US)
  Receive Date: 20220628
  Receipt Date: 20220628
  Transmission Date: 20220720
  Serious: Yes (Other)
  Sender: FDA-Public Use
  Company Number: US-JAZZ-2022-US-002584

PATIENT
  Sex: Female

DRUGS (1)
  1. XYWAV [Suspect]
     Active Substance: CALCIUM OXYBATE\MAGNESIUM OXYBATE\POTASSIUM OXYBATE\SODIUM OXYBATE
     Indication: Hypersomnia
     Dosage: 2.25 GRAM, BID
     Route: 048
     Dates: start: 202112

REACTIONS (8)
  - Loss of consciousness [Unknown]
  - COVID-19 [Unknown]
  - Illness [Unknown]
  - Head injury [Unknown]
  - Dizziness [Unknown]
  - Nausea [Unknown]
  - Eye contusion [Unknown]
  - Intentional product use issue [Unknown]
